FAERS Safety Report 4760308-7 (Version None)
Quarter: 2005Q3

REPORT INFORMATION
  Report Type: 
  Country: None (occurrence: None)
  Receive Date: 20050831
  Receipt Date: 20050812
  Transmission Date: 20060218
  Serious: Yes (Hospitalization)
  Sender: FDA-Public Use
  Company Number: JP_050707052

PATIENT
  Age: 32 Year
  Sex: Female

DRUGS (8)
  1. ZYPREXA [Suspect]
     Indication: SCHIZOPHRENIA
     Dosage: 5 MG DAY
     Dates: start: 20030101, end: 20050714
  2. LUVOX [Concomitant]
  3. RIVOTRIL (CLONAZEPAM) [Concomitant]
  4. LENDORM [Concomitant]
  5. ROHYPNOL (FLUNITRAZEPAM) [Concomitant]
  6. SEROQUEL [Concomitant]
  7. CHLORPROMAZINE [Concomitant]
  8. AMITRIPTYLINE HCL [Concomitant]

REACTIONS (10)
  - ANXIETY [None]
  - BLOOD CREATINE PHOSPHOKINASE INCREASED [None]
  - DIARRHOEA [None]
  - GRAND MAL CONVULSION [None]
  - HYPOAESTHESIA [None]
  - MYOCLONUS [None]
  - NAUSEA [None]
  - SEROTONIN SYNDROME [None]
  - UPPER RESPIRATORY TRACT INFLAMMATION [None]
  - VOMITING [None]
